FAERS Safety Report 21746447 (Version 8)
Quarter: 2023Q1

REPORT INFORMATION
  Report Type: Spontaneous
  Country: AU (occurrence: None)
  Receive Date: 20221219
  Receipt Date: 20230306
  Transmission Date: 20230418
  Serious: Yes (Other)
  Sender: FDA-Public Use
  Company Number: AU-ROCHE-3242894

PATIENT
  Sex: Male
  Weight: 76 kg

DRUGS (20)
  1. MABTHERA [Suspect]
     Active Substance: RITUXIMAB
     Indication: Diffuse large B-cell lymphoma
     Dosage: R-CVP FIRST LINE
     Route: 065
     Dates: start: 20121119, end: 20150407
  2. MABTHERA [Suspect]
     Active Substance: RITUXIMAB
     Dosage: R-ICE, 2ND LINE
     Route: 065
     Dates: start: 20170419, end: 20170620
  3. MABTHERA [Suspect]
     Active Substance: RITUXIMAB
     Dosage: R-DHAP, 3RD LINE
     Route: 065
     Dates: start: 20170712, end: 20171114
  4. MABTHERA [Suspect]
     Active Substance: RITUXIMAB
     Dosage: R-GEMOX 4TH LINE
     Route: 065
     Dates: start: 20221027
  5. RITUXIMAB [Suspect]
     Active Substance: RITUXIMAB
     Indication: Product used for unknown indication
     Route: 065
  6. IFOSFAMIDE [Suspect]
     Active Substance: IFOSFAMIDE
     Indication: Diffuse large B-cell lymphoma
     Route: 065
  7. ETOPOSIDE [Suspect]
     Active Substance: ETOPOSIDE
     Indication: Diffuse large B-cell lymphoma
     Route: 065
  8. DEXAMETHASONE [Suspect]
     Active Substance: DEXAMETHASONE
     Indication: Diffuse large B-cell lymphoma
     Route: 065
  9. CYTARABINE [Suspect]
     Active Substance: CYTARABINE
     Indication: Diffuse large B-cell lymphoma
     Route: 065
  10. CISPLATIN [Suspect]
     Active Substance: CISPLATIN
     Indication: Diffuse large B-cell lymphoma
     Route: 065
  11. GEMCITABINE [Suspect]
     Active Substance: GEMCITABINE
     Indication: Diffuse large B-cell lymphoma
     Route: 065
  12. OXALIPLATIN [Suspect]
     Active Substance: OXALIPLATIN
     Indication: Diffuse large B-cell lymphoma
     Route: 065
  13. VINCRISTINE [Suspect]
     Active Substance: VINCRISTINE
     Indication: Diffuse large B-cell lymphoma
     Route: 065
  14. PREDNISOLONE [Suspect]
     Active Substance: PREDNISOLONE
     Indication: Diffuse large B-cell lymphoma
     Route: 065
  15. CARBOPLATIN [Suspect]
     Active Substance: CARBOPLATIN
     Indication: Diffuse large B-cell lymphoma
     Route: 065
  16. APIXABAN [Concomitant]
     Active Substance: APIXABAN
  17. AMLODIPINE [Concomitant]
     Active Substance: AMLODIPINE BESYLATE
  18. ALLOPURINOL [Concomitant]
     Active Substance: ALLOPURINOL
  19. SULFAMETHOXAZOLE\TRIMETHOPRIM [Concomitant]
     Active Substance: SULFAMETHOXAZOLE\TRIMETHOPRIM
     Dosage: ON MONDAY AND THURSDAYS
  20. ENTECAVIR [Concomitant]
     Active Substance: ENTECAVIR

REACTIONS (3)
  - Diffuse large B-cell lymphoma [Unknown]
  - Dyspnoea [Unknown]
  - Fatigue [Unknown]
